FAERS Safety Report 9284970 (Version 15)
Quarter: 2015Q2

REPORT INFORMATION
  Report Type: Report from Study
  Country: CA (occurrence: CA)
  Receive Date: 20130513
  Receipt Date: 20150507
  Transmission Date: 20150821
  Serious: Yes (Other)
  Sender: FDA-Public Use
  Company Number: PHHY2013CA035202

PATIENT
  Age: 62 Year
  Sex: Female

DRUGS (22)
  1. GLEEVEC [Interacting]
     Active Substance: IMATINIB MESYLATE
     Dosage: 400 MG, QD
     Route: 048
     Dates: end: 20130503
  2. GLEEVEC [Interacting]
     Active Substance: IMATINIB MESYLATE
     Dosage: 200 MG, QD
     Route: 048
  3. NORVASC [Concomitant]
     Active Substance: AMLODIPINE BESYLATE
     Indication: PRODUCT USED FOR UNKNOWN INDICATION
     Route: 065
  4. BISOPROLOL [Concomitant]
     Active Substance: BISOPROLOL
     Indication: PRODUCT USED FOR UNKNOWN INDICATION
     Dosage: 10 MG, QD
     Route: 065
  5. GLEEVEC [Interacting]
     Active Substance: IMATINIB MESYLATE
     Dosage: 100 MG, QD
     Route: 048
  6. DIOVAN [Interacting]
     Active Substance: VALSARTAN
     Indication: HYPERTENSION
     Dosage: 1 DF, QD
     Route: 048
     Dates: end: 201305
  7. LETROZOLE. [Concomitant]
     Active Substance: LETROZOLE
     Indication: PRODUCT USED FOR UNKNOWN INDICATION
     Route: 065
  8. CRESTOR [Concomitant]
     Active Substance: ROSUVASTATIN CALCIUM
     Indication: PRODUCT USED FOR UNKNOWN INDICATION
     Dosage: 10 MG, UNK
     Route: 048
  9. BABY ASPIRIN [Concomitant]
     Active Substance: ASPIRIN
     Indication: PRODUCT USED FOR UNKNOWN INDICATION
     Route: 065
  10. GLEEVEC [Suspect]
     Active Substance: IMATINIB MESYLATE
     Indication: GASTROINTESTINAL STROMAL TUMOUR
     Dosage: 300 MG, DAILY
     Route: 048
     Dates: start: 201302
  11. GLEEVEC [Interacting]
     Active Substance: IMATINIB MESYLATE
     Dosage: 400 MG, QD
     Route: 048
     Dates: start: 20130406, end: 20130430
  12. GLEEVEC [Interacting]
     Active Substance: IMATINIB MESYLATE
     Dosage: 300 MG, QD
     Route: 048
  13. GLEEVEC [Interacting]
     Active Substance: IMATINIB MESYLATE
     Dosage: 400 MG, ONCE A DAY
     Route: 048
     Dates: start: 20140401
  14. AMLODIPINE [Concomitant]
     Active Substance: AMLODIPINE BESYLATE
     Indication: PRODUCT USED FOR UNKNOWN INDICATION
     Dosage: 5 MG, DAILY
     Route: 048
  15. GLEEVEC [Interacting]
     Active Substance: IMATINIB MESYLATE
     Dosage: 400 MG, QD
     Route: 048
  16. GLEEVEC [Interacting]
     Active Substance: IMATINIB MESYLATE
     Dosage: 300 MG, QD
     Route: 048
  17. HYDROCHLOROTHIAZIDE. [Concomitant]
     Active Substance: HYDROCHLOROTHIAZIDE
     Indication: HYPERTENSION
     Dosage: 25 MG, UNK
     Route: 065
  18. GLEEVEC [Interacting]
     Active Substance: IMATINIB MESYLATE
     Dosage: UNK
     Route: 048
  19. PROTEIN SUPPLEMENTS [Concomitant]
     Active Substance: PROTEIN
     Indication: PRODUCT USED FOR UNKNOWN INDICATION
     Route: 065
  20. GLEEVEC [Interacting]
     Active Substance: IMATINIB MESYLATE
     Dosage: UNK
     Route: 048
     Dates: end: 20130503
  21. GLEEVEC [Interacting]
     Active Substance: IMATINIB MESYLATE
     Dosage: 400 MG, QD
     Route: 048
     Dates: start: 20130812
  22. GLEEVEC [Interacting]
     Active Substance: IMATINIB MESYLATE
     Dosage: 300 MG, QD
     Route: 048

REACTIONS (29)
  - Gastrointestinal stromal tumour [Unknown]
  - Blister [Unknown]
  - Vomiting [Unknown]
  - Weight decreased [Unknown]
  - Oedema peripheral [Unknown]
  - Palpitations [Recovering/Resolving]
  - Lip dry [Unknown]
  - Nasopharyngitis [Unknown]
  - Pollakiuria [Unknown]
  - Cough [Unknown]
  - Dizziness [Unknown]
  - Oedema [Unknown]
  - Therapeutic response unexpected [Unknown]
  - Gastrointestinal sounds abnormal [Unknown]
  - Blister rupture [Unknown]
  - Urine output increased [Unknown]
  - Abdominal distension [Unknown]
  - Diarrhoea [Unknown]
  - Nausea [Unknown]
  - Recurrent cancer [Unknown]
  - Blood creatinine increased [Recovered/Resolved]
  - Fluid retention [Unknown]
  - Fatigue [Unknown]
  - Drug interaction [Unknown]
  - Poor quality sleep [Unknown]
  - Chapped lips [Unknown]
  - Flatulence [Unknown]
  - Ascites [Recovering/Resolving]
  - Swelling [Recovering/Resolving]

NARRATIVE: CASE EVENT DATE: 20130406
